FAERS Safety Report 23871785 (Version 2)
Quarter: 2024Q2

REPORT INFORMATION
  Report Type: Spontaneous
  Country: US (occurrence: US)
  Receive Date: 20240520
  Receipt Date: 20240619
  Transmission Date: 20240716
  Serious: No
  Sender: FDA-Public Use
  Company Number: US-SANOFI-02043916

PATIENT
  Age: 21 Year
  Sex: Female

DRUGS (1)
  1. LANTUS SOLOSTAR [Suspect]
     Active Substance: INSULIN GLARGINE
     Indication: Gestational diabetes
     Dosage: 16 UNITS IN THE MORNING, 20 UNITS IN THE EVENING AND DRUG TREATMENT DURATION:8 DAYS; 16 UNITS IN THE
     Route: 058
     Dates: start: 20240411

REACTIONS (3)
  - Injection site pain [Recovered/Resolved]
  - Off label use [Unknown]
  - Exposure during pregnancy [Unknown]

NARRATIVE: CASE EVENT DATE: 20240401
